FAERS Safety Report 9215328 (Version 1)
Quarter: 2013Q2

REPORT INFORMATION
  Report Type: Spontaneous
  Country: GB (occurrence: GB)
  Receive Date: 20130405
  Receipt Date: 20130405
  Transmission Date: 20140414
  Serious: Yes (Other)
  Sender: FDA-Public Use
  Company Number: GB-ABBOTT-13X-167-1072929-00

PATIENT
  Sex: 0

DRUGS (1)
  1. SODIUM VALPROATE [Suspect]
     Indication: MATERNAL EXPOSURE TIMING UNSPECIFIED
     Route: 064

REACTIONS (9)
  - Premature baby [Not Recovered/Not Resolved]
  - Learning disorder [Not Recovered/Not Resolved]
  - Asperger^s disorder [Not Recovered/Not Resolved]
  - Astigmatism [Not Recovered/Not Resolved]
  - Hypotonia [Not Recovered/Not Resolved]
  - Muscular weakness [Not Recovered/Not Resolved]
  - Muscle tightness [Not Recovered/Not Resolved]
  - Posture abnormal [Not Recovered/Not Resolved]
  - Foetal exposure during pregnancy [Unknown]
